FAERS Safety Report 7350392-9 (Version None)
Quarter: 2011Q1

REPORT INFORMATION
  Report Type: 
  Country: None (occurrence: None)
  Receive Date: 20110314
  Receipt Date: 20110308
  Transmission Date: 20110831
  Serious: Yes (Other)
  Sender: FDA-Public Use
  Company Number: AU-BRISTOL-MYERS SQUIBB COMPANY-15595515

PATIENT
  Age: 35 Year
  Sex: Female

DRUGS (3)
  1. ABILIFY [Suspect]
  2. PANADEINE FORTE [Concomitant]
  3. VALIUM [Concomitant]

REACTIONS (2)
  - DYSPEPSIA [None]
  - GASTRIC ULCER [None]
